FAERS Safety Report 7608863-3 (Version None)
Quarter: 2011Q3

REPORT INFORMATION
  Report Type: 
  Country: None (occurrence: None)
  Receive Date: 20110714
  Receipt Date: 20110710
  Transmission Date: 20111222
  Serious: No
  Sender: FDA-Public Use
  Company Number: US-PFIZER INC-2011155047

PATIENT
  Sex: Female
  Weight: 74.8 kg

DRUGS (2)
  1. PREMARIN [Suspect]
     Indication: BLOOD OESTROGEN DECREASED
     Dosage: DAILY
     Route: 067
     Dates: start: 20110629
  2. PREMARIN [Suspect]
     Indication: DYSPAREUNIA

REACTIONS (1)
  - BREAST ENLARGEMENT [None]
